FAERS Safety Report 6254872-9 (Version None)
Quarter: 2009Q3

REPORT INFORMATION
  Report Type: 
  Country: None (occurrence: None)
  Receive Date: 20090702
  Receipt Date: 20090617
  Transmission Date: 20100115
  Serious: Yes (Death)
  Sender: FDA-Public Use
  Company Number: NZ-AVENTIS-200916411GDDC

PATIENT
  Age: 80 Year
  Sex: Female

DRUGS (5)
  1. LEFLUNOMIDE [Suspect]
     Dates: end: 20061001
  2. METHOTREXATE [Suspect]
     Dates: end: 20061001
  3. METFORMIN HCL [Concomitant]
  4. FRUSEMIDE [Concomitant]
  5. OMEPRAZOLE [Concomitant]

REACTIONS (2)
  - ENDOCARDITIS [None]
  - SEPSIS [None]
